FAERS Safety Report 18842991 (Version 1)
Quarter: 2021Q1

REPORT INFORMATION
  Report Type: Spontaneous
  Country: US (occurrence: US)
  Receive Date: 20210203
  Receipt Date: 20210203
  Transmission Date: 20210419
  Serious: Yes (Life-Threatening, Hospitalization, Other)
  Sender: FDA-Public Use
  Company Number: None

PATIENT
  Age: 33 Year
  Sex: Female
  Weight: 117 kg

DRUGS (7)
  1. WARFARIN 10MG TAB CIT, 10 MG WALMART [Concomitant]
     Active Substance: WARFARIN
  2. SEIZURE MEDICINE [Concomitant]
  3. ENOXAPARIN SODIUM INJECTION [Suspect]
     Active Substance: ENOXAPARIN SODIUM
     Indication: PRODUCT USED FOR UNKNOWN INDICATION
     Dosage: ?          OTHER ROUTE:INJECTED INTO THE ABDOMEN?
  4. VITAMIN B12 [Concomitant]
     Active Substance: CYANOCOBALAMIN
  5. INR TESTING DEVICE [Concomitant]
  6. MULTIVITAMIN [Concomitant]
     Active Substance: VITAMINS
  7. IRON [Concomitant]
     Active Substance: IRON

REACTIONS (7)
  - Ovarian cyst ruptured [None]
  - Pallor [None]
  - Cerebral haemorrhage [None]
  - Nausea [None]
  - Headache [None]
  - Asthenia [None]
  - Seizure [None]

NARRATIVE: CASE EVENT DATE: 20191121
